FAERS Safety Report 23521467 (Version 1)
Quarter: 2024Q1

REPORT INFORMATION
  Report Type: Spontaneous
  Country: FR (occurrence: FR)
  Receive Date: 20240214
  Receipt Date: 20240214
  Transmission Date: 20240410
  Serious: Yes (Hospitalization)
  Sender: FDA-Public Use
  Company Number: None

PATIENT
  Age: 47 Year
  Sex: Female
  Weight: 84 kg

DRUGS (6)
  1. LETROZOLE [Suspect]
     Active Substance: LETROZOLE
     Indication: Breast cancer metastatic
     Dates: start: 202104
  2. RIBOCICLIB [Suspect]
     Active Substance: RIBOCICLIB
     Indication: Breast cancer metastatic
     Dates: start: 202104
  3. TRIPTORELIN [Suspect]
     Active Substance: TRIPTORELIN
     Indication: Breast cancer metastatic
     Dates: start: 202104
  4. ATORVASTATIN [Concomitant]
     Active Substance: ATORVASTATIN
  5. ESOMEPRAZOLE [Concomitant]
     Active Substance: ESOMEPRAZOLE
  6. ATENOLOL [Concomitant]
     Active Substance: ATENOLOL

REACTIONS (1)
  - Renal vascular thrombosis [Recovering/Resolving]

NARRATIVE: CASE EVENT DATE: 20210722
